FAERS Safety Report 5135350-7 (Version None)
Quarter: 2006Q4

REPORT INFORMATION
  Report Type: 
  Country: None (occurrence: None)
  Receive Date: 20061026
  Receipt Date: 20060301
  Transmission Date: 20070319
  Serious: No
  Sender: FDA-Public Use
  Company Number: US-GLAXOSMITHKLINE-A0595706A

PATIENT
  Age: 60 Year
  Sex: Female

DRUGS (4)
  1. IMITREX [Suspect]
     Indication: MIGRAINE
     Dosage: 20MG AS REQUIRED
     Route: 045
     Dates: start: 20051001, end: 20060201
  2. SYNTHROID [Concomitant]
  3. ESTROGENIC SUBSTANCE [Concomitant]
  4. NASACORT [Concomitant]

REACTIONS (3)
  - CHEST PAIN [None]
  - DYSPNOEA [None]
  - URTICARIA [None]
